FAERS Safety Report 25143030 (Version 1)
Quarter: 2025Q2

REPORT INFORMATION
  Report Type: Spontaneous
  Country: IT (occurrence: IT)
  Receive Date: 20250401
  Receipt Date: 20250401
  Transmission Date: 20250717
  Serious: Yes (Other)
  Sender: CHEPLAPHARM
  Company Number: IT-CHEPLA-2025004080

PATIENT
  Age: 36 Year
  Sex: Female

DRUGS (5)
  1. OLANZAPINE [Suspect]
     Active Substance: OLANZAPINE
     Indication: Major depression
     Dosage: TWICE DAILY?DAILY DOSE: 2.5 MILLIGRAM
  2. SODIUM CHLORIDE [Suspect]
     Active Substance: SODIUM CHLORIDE
     Indication: Supplementation therapy
     Route: 048
  3. LEVOTHYROXINE [Suspect]
     Active Substance: LEVOTHYROXINE
     Indication: Hypothyroidism
     Dosage: DAILY DOSE: 100 MICROGRAM
  4. PREGABALIN [Suspect]
     Active Substance: PREGABALIN
  5. ACETAMINOPHEN [Suspect]
     Active Substance: ACETAMINOPHEN
     Indication: Pain
     Dosage: DAILY DOSE: 500 MILLIGRAM

REACTIONS (1)
  - Inappropriate antidiuretic hormone secretion [Unknown]
